FAERS Safety Report 21615718 (Version 1)
Quarter: 2022Q4

REPORT INFORMATION
  Report Type: Report from Study
  Country: BR (occurrence: BR)
  Receive Date: 20221118
  Receipt Date: 20221118
  Transmission Date: 20230113
  Serious: Yes (Other)
  Sender: FDA-Public Use
  Company Number: BR-JNJFOC-20221125535

PATIENT
  Age: 34 Year
  Sex: Male
  Weight: 99 kg

DRUGS (6)
  1. REMICADE [Suspect]
     Active Substance: INFLIXIMAB
     Indication: Crohn^s disease
     Route: 041
     Dates: start: 20130506, end: 2017
  2. ANITA [Concomitant]
  3. ENTEROGERMINA [BACILLUS CLAUSII] [Concomitant]
  4. MORPHINE [Concomitant]
     Active Substance: MORPHINE
  5. TRAMADOL [Concomitant]
     Active Substance: TRAMADOL
  6. PREDNISONE [Concomitant]
     Active Substance: PREDNISONE
     Indication: Product used for unknown indication

REACTIONS (7)
  - Stem cell transplant [Unknown]
  - Intestinal obstruction [Unknown]
  - Crohn^s disease [Unknown]
  - Infusion related reaction [Unknown]
  - Post procedural infection [Unknown]
  - Hernia [Unknown]
  - Infusion [Unknown]

NARRATIVE: CASE EVENT DATE: 20170101
